FAERS Safety Report 4909942-1 (Version None)
Quarter: 2006Q1

REPORT INFORMATION
  Report Type: 
  Country: None (occurrence: None)
  Receive Date: 20060208
  Receipt Date: 20060126
  Transmission Date: 20060701
  Serious: Yes (Hospitalization)
  Sender: FDA-Public Use
  Company Number: 2006011599

PATIENT
  Age: 73 Year
  Sex: Male

DRUGS (9)
  1. NEURONTIN [Suspect]
     Indication: ILL-DEFINED DISORDER
     Dosage: ORAL
     Route: 048
  2. PANTOPRAZOLE SODIUM [Suspect]
     Indication: ILL-DEFINED DISORDER
     Dosage: ORAL
     Route: 048
     Dates: end: 20051216
  3. VERAPAMIL [Suspect]
     Indication: ILL-DEFINED DISORDER
     Dosage: ORAL
     Route: 048
     Dates: end: 20051129
  4. ASPIRIN [Suspect]
     Indication: ILL-DEFINED DISORDER
     Dosage: ORAL
     Route: 048
  5. ALDALIX (FUROSEMIDE, SPIRONOLACTONE) [Suspect]
     Indication: ILL-DEFINED DISORDER
     Dosage: ORAL
     Route: 048
     Dates: end: 20051129
  6. LESCOL [Suspect]
     Indication: ILL-DEFINED DISORDER
     Dosage: ORAL
     Route: 048
     Dates: end: 20051124
  7. BETAMETHASONE/CALCIPOTRIOL (BETAMETHASONE, CALCIPOTRIOL) [Concomitant]
  8. ALL OTHER THERAPEUTIC PRODUCTS (ALL OTHER THERAPEUTIC PRODUCTS) [Concomitant]
  9. MIXTARD HUMAN 70/30 [Concomitant]

REACTIONS (6)
  - BONE FISSURE [None]
  - DEHYDRATION [None]
  - DERMATITIS EXFOLIATIVE [None]
  - FACE OEDEMA [None]
  - GENERAL PHYSICAL CONDITION ABNORMAL [None]
  - SKIN ULCER [None]
